FAERS Safety Report 14154532 (Version 3)
Quarter: 2018Q2

REPORT INFORMATION
  Report Type: Spontaneous
  Country: CA (occurrence: CA)
  Receive Date: 20171102
  Receipt Date: 20180502
  Transmission Date: 20180711
  Serious: Yes (Hospitalization)
  Sender: FDA-Public Use
  Company Number: CA-ACTELION-A-US2017-161616

PATIENT
  Age: 30 Year
  Sex: Female
  Weight: 54.42 kg

DRUGS (6)
  1. ZOPLICONE [Concomitant]
     Active Substance: ZOPICLONE
  2. WARFARIN [Concomitant]
     Active Substance: WARFARIN
  3. PANTOPRAZOLE [Concomitant]
     Active Substance: PANTOPRAZOLE
  4. ADCIRCA [Concomitant]
     Active Substance: TADALAFIL
     Dosage: UNK
     Dates: start: 20170627
  5. CARIPUL [Suspect]
     Active Substance: EPOPROSTENOL
     Indication: PULMONARY ARTERIAL HYPERTENSION
     Dosage: UNK
     Route: 042
     Dates: start: 20171006
  6. VOLIBRIS [Concomitant]
     Active Substance: AMBRISENTAN

REACTIONS (9)
  - Swelling face [Unknown]
  - Flushing [Not Recovered/Not Resolved]
  - Lip erythema [Not Recovered/Not Resolved]
  - Vomiting [Not Recovered/Not Resolved]
  - Abdominal pain upper [Not Recovered/Not Resolved]
  - International normalised ratio decreased [Not Recovered/Not Resolved]
  - Device infusion issue [Not Recovered/Not Resolved]
  - Headache [Not Recovered/Not Resolved]
  - Nausea [Not Recovered/Not Resolved]

NARRATIVE: CASE EVENT DATE: 20171021
